FAERS Safety Report 20354590 (Version 1)
Quarter: 2022Q1

REPORT INFORMATION
  Report Type: Other
  Country: US (occurrence: US)
  Receive Date: 20220120
  Receipt Date: 20220120
  Transmission Date: 20220423
  Serious: Yes (Hospitalization)
  Sender: FDA-Public Use
  Company Number: US-HLS-202200043

PATIENT

DRUGS (4)
  1. CLOZAPINE [Suspect]
     Active Substance: CLOZAPINE
     Indication: Schizophrenia
     Dosage: TARGET MAINTENANCE DOSE 100 TO 300 MG DAILY
     Route: 065
  2. CLOZAPINE [Suspect]
     Active Substance: CLOZAPINE
     Indication: Bipolar disorder
     Dosage: TARGET MAINTENANCE DOSE 100 TO 300 MG DAILY
     Route: 065
  3. CLOZAPINE [Suspect]
     Active Substance: CLOZAPINE
     Indication: Schizophrenia
     Dosage: TARGET MAINTENANCE DOSE 300 TO 450 MG DAILY
     Route: 065
  4. CLOZAPINE [Suspect]
     Active Substance: CLOZAPINE
     Indication: Bipolar disorder
     Dosage: TARGET MAINTENANCE DOSE 300 TO 450 MG DAILY
     Route: 065

REACTIONS (4)
  - Agitation [Unknown]
  - Off label use [Unknown]
  - Confusional state [Unknown]
  - Loss of consciousness [Recovered/Resolved]
